FAERS Safety Report 21478214 (Version 2)
Quarter: 2022Q4

REPORT INFORMATION
  Report Type: Spontaneous
  Country: US (occurrence: US)
  Receive Date: 20221019
  Receipt Date: 20221125
  Transmission Date: 20230112
  Serious: Yes (Hospitalization, Other)
  Sender: FDA-Public Use
  Company Number: US-SA-SAC20221010001384

PATIENT
  Age: 29 Year
  Sex: Female

DRUGS (23)
  1. DUPIXENT [Suspect]
     Active Substance: DUPILUMAB
     Indication: Dermatitis atopic
     Dosage: 600 MG, 1X
     Route: 058
     Dates: start: 20210423, end: 20210423
  2. DUPIXENT [Suspect]
     Active Substance: DUPILUMAB
     Dosage: 300 MG, QOW
     Route: 058
  3. ALLOPURINOL [Concomitant]
     Active Substance: ALLOPURINOL
     Dosage: UNK
  4. ALLOPURINOL [Concomitant]
     Active Substance: ALLOPURINOL
  5. BUMETANIDE [Concomitant]
     Active Substance: BUMETANIDE
     Dosage: UNK
  6. BUMEX [Concomitant]
     Active Substance: BUMETANIDE
     Dosage: UNK
  7. CITALOPRAM [Concomitant]
     Active Substance: CITALOPRAM HYDROBROMIDE
  8. CLOBETASOL [Concomitant]
     Active Substance: CLOBETASOL
  9. COUMADIN [Concomitant]
     Active Substance: WARFARIN SODIUM
  10. DIGOXIN [Concomitant]
     Active Substance: DIGOXIN
  11. ENALAPRIL [Concomitant]
     Active Substance: ENALAPRIL
  12. EPLERENONE [Concomitant]
     Active Substance: EPLERENONE
  13. IRON [Concomitant]
     Active Substance: IRON
  14. METOLAZONE [Concomitant]
     Active Substance: METOLAZONE
  15. POTASSIUM [Concomitant]
     Active Substance: POTASSIUM
  16. SYMBICORT [Concomitant]
     Active Substance: BUDESONIDE\FORMOTEROL FUMARATE DIHYDRATE
  17. VITAMIN D NOS [Concomitant]
     Active Substance: VITAMIN D NOS
  18. WARFARIN [Concomitant]
     Active Substance: WARFARIN
  19. KLOR-CON M20 [Concomitant]
     Active Substance: POTASSIUM CHLORIDE
  20. BISOPROLOL FUMARATE [Concomitant]
     Active Substance: BISOPROLOL FUMARATE
  21. SPIRIVA [Concomitant]
     Active Substance: TIOTROPIUM BROMIDE MONOHYDRATE
  22. VITAMINS [Concomitant]
     Active Substance: VITAMINS
     Dosage: UNK
  23. SPIRIVA [Concomitant]
     Active Substance: TIOTROPIUM BROMIDE MONOHYDRATE

REACTIONS (7)
  - Cardiac failure [Recovered/Resolved]
  - Fluid retention [Recovered/Resolved]
  - Impaired quality of life [Recovered/Resolved]
  - Pain [Unknown]
  - Hernia [Unknown]
  - Dermatitis atopic [Recovered/Resolved]
  - Product dose omission in error [Unknown]
